FAERS Safety Report 22649566 (Version 1)
Quarter: 2023Q2

REPORT INFORMATION
  Report Type: Report from Study
  Country: AT (occurrence: AT)
  Receive Date: 20230628
  Receipt Date: 20230628
  Transmission Date: 20230722
  Serious: Yes (Life-Threatening, Hospitalization)
  Sender: FDA-Public Use
  Company Number: None

PATIENT
  Age: 68 Year
  Sex: Female

DRUGS (10)
  1. ANASTROZOLE [Suspect]
     Active Substance: ANASTROZOLE
     Indication: Breast cancer metastatic
     Dates: start: 20170410, end: 2017
  2. EXEMESTANE [Suspect]
     Active Substance: EXEMESTANE
     Indication: Breast cancer metastatic
     Dosage: MOST RECENT DOSE: 09/APR/2017
     Dates: start: 20170321
  3. TRASTUZUMAB [Suspect]
     Active Substance: TRASTUZUMAB
     Indication: Breast cancer metastatic
     Dates: start: 20161107, end: 20170502
  4. PERTUZUMAB [Suspect]
     Active Substance: PERTUZUMAB
     Indication: Breast cancer metastatic
     Dates: start: 20161107, end: 20170502
  5. LASIX [Concomitant]
     Active Substance: FUROSEMIDE
     Dates: start: 20170615
  6. ALPRAZOLAM [Concomitant]
     Active Substance: ALPRAZOLAM
     Dates: start: 20170615, end: 20170704
  7. MEFENAMIC ACID [Concomitant]
     Active Substance: MEFENAMIC ACID
     Dates: start: 20170217, end: 20170615
  8. NOVALGIN [Concomitant]
     Dates: start: 20170615, end: 20170704
  9. TRAZODONE HYDROCHLORIDE [Concomitant]
     Active Substance: TRAZODONE HYDROCHLORIDE
     Dosage: ONGOING -NOT CHECKED
     Dates: start: 20170615, end: 20170704
  10. ESOMEPRAZOLE [Concomitant]
     Active Substance: ESOMEPRAZOLE
     Dosage: ONGOING - NOT CHECKED
     Dates: start: 20170615, end: 20170704

REACTIONS (3)
  - Vomiting [Recovered/Resolved]
  - Pleural effusion [Recovered/Resolved]
  - Cough [Unknown]

NARRATIVE: CASE EVENT DATE: 20170410
